FAERS Safety Report 7933327-7 (Version None)
Quarter: 2011Q4

REPORT INFORMATION
  Report Type: 
  Country: None (occurrence: None)
  Receive Date: 20111122
  Receipt Date: 20111116
  Transmission Date: 20120403
  Serious: Yes (Other)
  Sender: FDA-Public Use
  Company Number: US-SANOFI-AVENTIS-2011SA075732

PATIENT
  Age: 40 Year
  Sex: Female

DRUGS (2)
  1. FEXOFENADINE [Concomitant]
     Dates: end: 20110801
  2. ALLEGRA [Suspect]
     Route: 048
     Dates: start: 20110801, end: 20111116

REACTIONS (5)
  - MUSCULOSKELETAL STIFFNESS [None]
  - CRYING [None]
  - PANIC ATTACK [None]
  - TREMOR [None]
  - DIZZINESS [None]
